FAERS Safety Report 9819898 (Version 1)
Quarter: 2014Q1

REPORT INFORMATION
  Report Type: Spontaneous
  Country: US (occurrence: None)
  Receive Date: 20140113
  Receipt Date: 20140113
  Transmission Date: 20141002
  Serious: Yes (Hospitalization)
  Sender: FDA-Public Use
  Company Number: None

PATIENT
  Age: 58 Year
  Sex: Female
  Weight: 74.84 kg

DRUGS (6)
  1. GAMMAGARD [Suspect]
     Indication: IMMUNODEFICIENCY
     Dosage: 10GM/10ML  EVERY WEEK  SUBCUTANEOUS
     Route: 058
  2. GAMMAGARD [Suspect]
     Indication: IMMUNODEFICIENCY
     Dosage: 10GM/100ML  EVERY WEEK SUBCUTANEOUS
     Route: 058
  3. GABAPENTIN [Concomitant]
  4. PRIOLOSEC [Concomitant]
  5. XANAX [Concomitant]
  6. IBUPROFEN [Concomitant]

REACTIONS (1)
  - Movement disorder [None]
